FAERS Safety Report 6334042-6 (Version None)
Quarter: 2009Q3

REPORT INFORMATION
  Report Type: 
  Country: None (occurrence: None)
  Receive Date: 20090829
  Receipt Date: 20090820
  Transmission Date: 20100115
  Serious: Yes (Other)
  Sender: FDA-Public Use
  Company Number: US-ELI_LILLY_AND_COMPANY-US200908004810

PATIENT
  Age: 3 Year
  Sex: Female

DRUGS (2)
  1. HUMATROPE [Suspect]
     Dosage: UNK, UNKNOWN
     Dates: start: 20090601
  2. HUMIRA [Concomitant]
     Dosage: UNK, UNKNOWN
     Dates: start: 20081201

REACTIONS (1)
  - OSTEOPOROSIS [None]
